FAERS Safety Report 5685555-1 (Version None)
Quarter: 2008Q1

REPORT INFORMATION
  Report Type: 
  Country: None (occurrence: None)
  Receive Date: 20080328
  Receipt Date: 20070820
  Transmission Date: 20080703
  Serious: No
  Sender: FDA-Public Use
  Company Number: US-BAYER-US-2007-031384

PATIENT
  Age: 31 Year
  Sex: Female
  Weight: 74 kg

DRUGS (3)
  1. MIRENA [Suspect]
     Indication: CONTRACEPTION
     Route: 015
     Dates: start: 20020101, end: 20070726
  2. MIRENA [Suspect]
     Route: 015
     Dates: start: 20070726, end: 20070726
  3. VALIUM [Concomitant]
     Indication: PREMEDICATION

REACTIONS (4)
  - COMPLICATION OF DEVICE INSERTION [None]
  - COMPLICATION OF DEVICE REMOVAL [None]
  - IUCD COMPLICATION [None]
  - PROCEDURAL PAIN [None]
